FAERS Safety Report 4318103-9 (Version None)
Quarter: 2004Q1

REPORT INFORMATION
  Report Type: 
  Country: None (occurrence: None)
  Receive Date: 20040317
  Receipt Date: 20040226
  Transmission Date: 20041129
  Serious: Yes (Hospitalization)
  Sender: FDA-Public Use
  Company Number: WAES 0403USA00042

PATIENT
  Age: 55 Year
  Sex: Female

DRUGS (19)
  1. ADONA [Concomitant]
     Route: 042
     Dates: start: 20040210, end: 20040210
  2. ADONA [Concomitant]
     Route: 042
     Dates: start: 20040220, end: 20040220
  3. CEFACLOR [Concomitant]
     Route: 048
     Dates: start: 20040225, end: 20040227
  4. CEFAZOLIN [Concomitant]
     Route: 042
     Dates: start: 20040220, end: 20040224
  5. CEFOTIAM HYDROCHLORIDE [Concomitant]
     Route: 042
     Dates: start: 20040212, end: 20040218
  6. PEPCID [Suspect]
     Indication: GASTRIC ULCER
     Route: 048
     Dates: start: 20040210
  7. PEPCID [Suspect]
     Route: 048
  8. PEPCID [Suspect]
     Indication: PEPTIC ULCER
     Route: 042
     Dates: start: 20040210, end: 20040211
  9. PEPCID [Suspect]
     Route: 042
     Dates: start: 20040220, end: 20040221
  10. GLYCEOL [Concomitant]
     Route: 042
     Dates: start: 20040216, end: 20040220
  11. IBUPROFEN [Concomitant]
     Route: 048
     Dates: start: 20040224
  12. LOXONIN [Concomitant]
     Route: 048
     Dates: start: 20040218, end: 20040224
  13. PHENOBAL [Concomitant]
     Route: 030
     Dates: start: 20040220, end: 20040221
  14. PHENOBARBITAL AND PHENYTOIN [Concomitant]
     Route: 048
     Dates: start: 20040210
  15. DOGMATYL [Concomitant]
     Route: 048
     Dates: start: 20040224
  16. SELBEX [Concomitant]
     Route: 048
     Dates: start: 20040218, end: 20040224
  17. TRANSAMIN [Concomitant]
     Route: 042
     Dates: start: 20040210, end: 20040210
  18. TRANSAMIN [Concomitant]
     Route: 042
     Dates: start: 20040220, end: 20040220
  19. VITAMEDIN [Concomitant]
     Route: 042
     Dates: start: 20040221, end: 20040221

REACTIONS (6)
  - DIABETES INSIPIDUS [None]
  - EPILEPSY [None]
  - HAEMANGIOMA [None]
  - HEAD INJURY [None]
  - POST PROCEDURAL COMPLICATION [None]
  - SUBDURAL HAEMATOMA [None]
